FAERS Safety Report 14741305 (Version 4)
Quarter: 2018Q4

REPORT INFORMATION
  Report Type: Spontaneous
  Country: DK (occurrence: DK)
  Receive Date: 20180410
  Receipt Date: 20181224
  Transmission Date: 20190204
  Serious: Yes (Death, Hospitalization)
  Sender: FDA-Public Use
  Company Number: DK-TEVA-2018-DK-878575

PATIENT
  Age: 74 Year
  Sex: Male
  Weight: 69 kg

DRUGS (9)
  1. SALAZOPYRIN EN-TABS [Suspect]
     Active Substance: SULFASALAZINE
     Dosage: 1000 MILLIGRAM DAILY;
     Route: 048
     Dates: start: 20171127, end: 20171222
  2. SALAZOPYRIN EN-TABS [Suspect]
     Active Substance: SULFASALAZINE
     Dosage: UNKNOWN
     Route: 048
     Dates: start: 20171018, end: 20171116
  3. AVELUMAB [Suspect]
     Active Substance: AVELUMAB
     Indication: BLADDER TRANSITIONAL CELL CARCINOMA
     Dosage: EVERY 2ND WEEK
     Route: 042
     Dates: start: 20171018, end: 20171129
  4. PANTOPRAZOL [Concomitant]
     Active Substance: PANTOPRAZOLE SODIUM
     Dates: start: 201704
  5. PARACETAMOL [Concomitant]
     Active Substance: ACETAMINOPHEN
     Dosage: 2420 MILLIGRAM DAILY;
     Dates: start: 20170405, end: 20171222
  6. IBUPROFEN. [Suspect]
     Active Substance: IBUPROFEN
     Indication: ABDOMINAL PAIN
     Dosage: AS NEEDED, MAX 3 TIMES DAILY,
     Route: 048
     Dates: start: 20171127, end: 20171224
  7. PREDNISOLONE. [Suspect]
     Active Substance: PREDNISOLONE
     Indication: HEPATIC PAIN
     Dosage: 50 MILLIGRAM DAILY;
     Route: 048
     Dates: start: 20171222
  8. SALAZOPYRIN EN-TABS [Suspect]
     Active Substance: SULFASALAZINE
     Indication: RHEUMATOID ARTHRITIS
     Route: 048
     Dates: start: 2005, end: 20170418
  9. DOMPERIDON [Concomitant]
     Active Substance: DOMPERIDONE
     Dates: start: 20171113

REACTIONS (1)
  - Gastric ulcer haemorrhage [Recovered/Resolved]

NARRATIVE: CASE EVENT DATE: 20171222
